FAERS Safety Report 7084860-4 (Version None)
Quarter: 2010Q4

REPORT INFORMATION
  Report Type: 
  Country: None (occurrence: None)
  Receive Date: 20101103
  Receipt Date: 20101103
  Transmission Date: 20110411
  Serious: Yes (Other)
  Sender: FDA-Public Use
  Company Number: None

PATIENT
  Sex: Male
  Weight: 81.8 kg

DRUGS (1)
  1. RAPAFLO [Suspect]
     Indication: BENIGN PROSTATIC HYPERPLASIA
     Dosage: 8MG DAILY ORALLY
     Route: 048
     Dates: start: 20101006, end: 20101030

REACTIONS (1)
  - HERPES ZOSTER [None]
